FAERS Safety Report 24584542 (Version 1)
Quarter: 2024Q4

REPORT INFORMATION
  Report Type: Spontaneous
  Country: US (occurrence: None)
  Receive Date: 20241106
  Receipt Date: 20241106
  Transmission Date: 20250115
  Serious: Yes (Hospitalization)
  Sender: Public
  Company Number: None

PATIENT
  Age: 69 Year
  Sex: Male
  Weight: 82 kg

DRUGS (4)
  1. OXALIPLATIN [Suspect]
     Active Substance: OXALIPLATIN
     Dates: start: 20241022, end: 20241022
  2. FLUOROURACIL [Suspect]
     Active Substance: FLUOROURACIL
     Dates: start: 20241022, end: 20241022
  3. IRINOTECAN [Suspect]
     Active Substance: IRINOTECAN
     Dates: start: 20241022, end: 20241022
  4. NIVOLUMAB [Suspect]
     Active Substance: NIVOLUMAB
     Dates: end: 20241022

REACTIONS (8)
  - Vomiting [None]
  - Decreased appetite [None]
  - Pyrexia [None]
  - Dysphagia [None]
  - Blood lactate dehydrogenase increased [None]
  - Anaemia [None]
  - Platelet count decreased [None]
  - Neutrophil count decreased [None]

NARRATIVE: CASE EVENT DATE: 20241101
